FAERS Safety Report 5518856-8 (Version None)
Quarter: 2007Q4

REPORT INFORMATION
  Report Type: 
  Country: None (occurrence: None)
  Receive Date: 20071113
  Receipt Date: 20071028
  Transmission Date: 20080405
  Serious: Yes (Other)
  Sender: FDA-Public Use
  Company Number: 17787

PATIENT
  Age: 46 Year
  Sex: Female

DRUGS (2)
  1. ANZATAX [Suspect]
     Indication: UTERINE CANCER
     Dosage: 280 MG  IV
     Route: 042
     Dates: start: 20070613, end: 20070927
  2. CARBOPLATIN [Concomitant]

REACTIONS (4)
  - BACK PAIN [None]
  - FLUSHING [None]
  - LOSS OF CONSCIOUSNESS [None]
  - MALAISE [None]
